FAERS Safety Report 7867338-7 (Version None)
Quarter: 2011Q4

REPORT INFORMATION
  Report Type: 
  Country: None (occurrence: None)
  Receive Date: 20111028
  Receipt Date: 20111022
  Transmission Date: 20120403
  Serious: Yes (Hospitalization)
  Sender: FDA-Public Use
  Company Number: US-BRISTOL-MYERS SQUIBB COMPANY-15338353

PATIENT
  Age: 56 Year
  Sex: Male
  Weight: 102 kg

DRUGS (29)
  1. OXYCODONE HCL [Concomitant]
     Indication: COUGH
     Dosage: OXYCODONE HCL SUSTAINED RELEASE
     Dates: start: 20101011
  2. DARVOCET-N 100 [Concomitant]
     Dosage: TABS
     Route: 048
  3. IPILIMUMAB [Suspect]
     Indication: MALIGNANT MELANOMA
     Dosage: 294MG
     Route: 042
     Dates: start: 20100920
  4. GLIPIZIDE [Concomitant]
     Dates: start: 20101022
  5. TESSALON [Concomitant]
     Indication: COUGH
     Dosage: CAPS
     Route: 048
  6. ZOLOFT [Concomitant]
     Dosage: TABS
     Route: 048
  7. BENADRYL [Concomitant]
     Dosage: ALLERGY CAPS
  8. ZOFRAN [Concomitant]
     Dosage: TABS
  9. LEVAQUIN [Concomitant]
     Route: 048
  10. GLUCOTROL [Concomitant]
     Route: 048
  11. LOMOTIL [Concomitant]
     Dates: start: 20101013, end: 20101014
  12. AVANDIA [Concomitant]
  13. PLAVIX [Concomitant]
     Route: 048
  14. LOPERAMIDE HCL [Concomitant]
     Dates: start: 20080101
  15. POTASSIUM [Concomitant]
     Dates: start: 20101101
  16. DARVOCET [Concomitant]
  17. PREDNISONE [Concomitant]
     Dosage: AND 60MG, 40MG, 10MG, 10MG, 5MG
     Route: 048
  18. DECADRON [Concomitant]
  19. ZOLPIDEM TARTRATE [Concomitant]
     Dates: start: 20090101
  20. METFORMIN HCL [Concomitant]
     Route: 048
     Dates: start: 20080101
  21. DIPHENHYDRAMINE HCL [Concomitant]
     Route: 048
     Dates: start: 20090101
  22. TUSSIONEX [Concomitant]
     Indication: COUGH
     Dosage: 1DF=5-10ML EVERY 12HRS
     Route: 048
  23. AMBIEN [Concomitant]
     Dosage: TABS
  24. GLUCOPHAGE [Concomitant]
  25. PEPCID [Concomitant]
     Dosage: TABS , TWO BEFORE CHEMO
     Route: 048
  26. ROSIGLITAZONE MALEATE [Concomitant]
     Dates: start: 20090101
  27. DEXAMETHASONE [Concomitant]
     Route: 048
     Dates: start: 20100101
  28. OXYCONTIN [Concomitant]
     Indication: COUGH
     Route: 048
  29. AZITHROMYCIN [Concomitant]
     Route: 048

REACTIONS (3)
  - DIARRHOEA [None]
  - VOMITING [None]
  - DEHYDRATION [None]
